FAERS Safety Report 24566674 (Version 1)
Quarter: 2024Q4

REPORT INFORMATION
  Report Type: Spontaneous
  Country: US (occurrence: None)
  Receive Date: 20241030
  Receipt Date: 20241030
  Transmission Date: 20250114
  Serious: Yes (Hospitalization)
  Sender: Public
  Company Number: None

PATIENT
  Age: 70 Year
  Sex: Female
  Weight: 51.3 kg

DRUGS (3)
  1. CYTARABINE [Suspect]
     Active Substance: CYTARABINE
     Dates: end: 20241014
  2. SPRYCEL [Suspect]
     Active Substance: DASATINIB
     Dates: end: 20241020
  3. METHOTREXATE [Suspect]
     Active Substance: METHOTREXATE
     Dates: end: 20241014

REACTIONS (9)
  - Mucosal inflammation [None]
  - Pyrexia [None]
  - Neutropenia [None]
  - Thrombocytopenia [None]
  - Anaemia [None]
  - Stomatitis [None]
  - Oesophagitis [None]
  - Pleural effusion [None]
  - White blood cell count decreased [None]

NARRATIVE: CASE EVENT DATE: 20241021
